FAERS Safety Report 19591881 (Version 1)
Quarter: 2021Q3

REPORT INFORMATION
  Report Type: Spontaneous
  Country: US (occurrence: US)
  Receive Date: 20210721
  Receipt Date: 20210721
  Transmission Date: 20211014
  Serious: No
  Sender: FDA-Public Use
  Company Number: US-BAUSCH-BL-2021-021138

PATIENT
  Sex: Female

DRUGS (2)
  1. LACRISERT [Suspect]
     Active Substance: HYDROXYPROPYL CELLULOSE
     Indication: DRY EYE
     Route: 047
     Dates: start: 202103
  2. LACRISERT [Suspect]
     Active Substance: HYDROXYPROPYL CELLULOSE
     Indication: OCULAR ROSACEA

REACTIONS (3)
  - Product residue present [Unknown]
  - Foreign body sensation in eyes [Unknown]
  - Eye pain [Unknown]

NARRATIVE: CASE EVENT DATE: 202103
